FAERS Safety Report 13638222 (Version 1)
Quarter: 2017Q2

REPORT INFORMATION
  Report Type: Spontaneous
  Country: FR (occurrence: FR)
  Receive Date: 20170609
  Receipt Date: 20170609
  Transmission Date: 20170830
  Serious: Yes (Other)
  Sender: FDA-Public Use
  Company Number: FR-BAYER-2017-104606

PATIENT
  Age: 42 Year
  Sex: Female
  Weight: 110 kg

DRUGS (1)
  1. MIRENA [Suspect]
     Active Substance: LEVONORGESTREL
     Indication: MENORRHAGIA
     Dosage: 20 MCG/24HR, CONT
     Route: 015
     Dates: start: 20150526

REACTIONS (10)
  - Speech disorder [Not Recovered/Not Resolved]
  - Back pain [Not Recovered/Not Resolved]
  - Diarrhoea [Not Recovered/Not Resolved]
  - Abdominal pain [Not Recovered/Not Resolved]
  - Amnesia [Not Recovered/Not Resolved]
  - Breast pain [Not Recovered/Not Resolved]
  - Disturbance in attention [Not Recovered/Not Resolved]
  - Aggression [Not Recovered/Not Resolved]
  - Formication [Not Recovered/Not Resolved]
  - Visual acuity reduced [Not Recovered/Not Resolved]
